FAERS Safety Report 4621144-5 (Version None)
Quarter: 2005Q1

REPORT INFORMATION
  Report Type: 
  Country: None (occurrence: None)
  Receive Date: 20050328
  Receipt Date: 20050314
  Transmission Date: 20050727
  Serious: Yes (Hospitalization)
  Sender: FDA-Public Use
  Company Number: 2004CG02398

PATIENT
  Age: 76 Year
  Sex: Female
  Weight: 92 kg

DRUGS (11)
  1. HYTACAND [Suspect]
     Indication: ESSENTIAL HYPERTENSION
     Dosage: 1 DF DAILY PO
     Route: 048
     Dates: end: 20040818
  2. FUROSEMIDE [Suspect]
     Indication: ESSENTIAL HYPERTENSION
     Dosage: 1 DF DAILY PO
     Route: 048
     Dates: end: 20040818
  3. NON STEROID ANTIINFLAMMATORY DRUG [Suspect]
     Indication: BACK PAIN
     Dates: start: 20040803, end: 20040818
  4. FLODIL - SLOW RELEASE [Concomitant]
  5. CORDARONE [Concomitant]
  6. PREVISCAN [Concomitant]
  7. ALLOPURINOL [Concomitant]
  8. TROXERUTINE [Concomitant]
  9. DOLIPRANE [Concomitant]
  10. TRAMADOL HCL [Concomitant]
  11. DI-ANTALVIC [Concomitant]

REACTIONS (2)
  - DRUG INTERACTION [None]
  - RENAL FAILURE ACUTE [None]
